FAERS Safety Report 4747340-4 (Version None)
Quarter: 2005Q3

REPORT INFORMATION
  Report Type: 
  Country: None (occurrence: None)
  Receive Date: 20050817
  Receipt Date: 20050310
  Transmission Date: 20060218
  Serious: Yes (Death, Other)
  Sender: FDA-Public Use
  Company Number: US-MERCK-0503USA02330

PATIENT
  Sex: Male

DRUGS (8)
  1. VIOXX [Suspect]
     Route: 048
  2. ZOLOFT [Concomitant]
     Route: 065
  3. PRAVACHOL [Concomitant]
     Route: 065
  4. XENICAL [Concomitant]
     Route: 065
  5. PRILOSEC [Concomitant]
     Route: 065
  6. TOPROL-XL [Concomitant]
     Route: 065
  7. ALTACE [Concomitant]
     Route: 065
  8. VITAMINS (UNSPECIFIED) [Concomitant]
     Route: 065

REACTIONS (2)
  - CEREBROVASCULAR ACCIDENT [None]
  - MYOCARDIAL INFARCTION [None]
